FAERS Safety Report 19903334 (Version 1)
Quarter: 2021Q4

REPORT INFORMATION
  Report Type: Other
  Country: RU (occurrence: RU)
  Receive Date: 20211001
  Receipt Date: 20211001
  Transmission Date: 20220303
  Serious: Yes (Life-Threatening, Other)
  Sender: FDA-Public Use
  Company Number: None

PATIENT

DRUGS (1)
  1. LEUKERAN [Suspect]
     Active Substance: CHLORAMBUCIL
     Indication: Chronic lymphocytic leukaemia
     Dosage: 16 MG, QD
     Route: 048
     Dates: start: 20210901, end: 20210907

REACTIONS (4)
  - Drug ineffective [Unknown]
  - Anaemia [Not Recovered/Not Resolved]
  - Leukocytosis [Not Recovered/Not Resolved]
  - Thrombocytopenia [Not Recovered/Not Resolved]

NARRATIVE: CASE EVENT DATE: 20210901
